FAERS Safety Report 9957049 (Version 1)
Quarter: 2014Q1

REPORT INFORMATION
  Report Type: Report from Study
  Country: US (occurrence: US)
  Receive Date: 20140304
  Receipt Date: 20140304
  Transmission Date: 20141002
  Serious: No
  Sender: FDA-Public Use
  Company Number: US-ABBVIE-13P-163-1099571-00

PATIENT
  Age: 20 Year
  Sex: Female

DRUGS (11)
  1. HUMIRA [Suspect]
     Indication: CROHN^S DISEASE
     Dosage: LOADING DOSE
     Dates: start: 20130515, end: 20130515
  2. HUMIRA [Suspect]
     Dosage: LOADING DOSE
     Dates: start: 20130516, end: 20130516
  3. CYMBALTA [Concomitant]
     Indication: MOOD ALTERED
     Dosage: 90 MG DAILY
  4. CYMBALTA [Concomitant]
     Indication: PRODUCT USED FOR UNKNOWN INDICATION
  5. VYVANSE [Concomitant]
     Indication: MOOD ALTERED
     Dosage: 30 MG DAILY
  6. VYVANSE [Concomitant]
     Indication: DISTURBANCE IN ATTENTION
  7. SEROQUEL [Concomitant]
     Indication: MOOD ALTERED
     Dosage: 60 MG DAILY
  8. SEROQUEL [Concomitant]
     Indication: DEPRESSION
  9. ENTOCORT [Concomitant]
     Indication: CROHN^S DISEASE
     Dosage: 9 MG DAILY
  10. PENTASA [Concomitant]
     Indication: CROHN^S DISEASE
  11. TYLENOL [Concomitant]
     Indication: PAIN

REACTIONS (13)
  - Dizziness [Not Recovered/Not Resolved]
  - Pain [Not Recovered/Not Resolved]
  - Pneumonia [Not Recovered/Not Resolved]
  - Malaise [Not Recovered/Not Resolved]
  - Nausea [Not Recovered/Not Resolved]
  - Myalgia [Not Recovered/Not Resolved]
  - Pain [Not Recovered/Not Resolved]
  - Pain in extremity [Not Recovered/Not Resolved]
  - Eye pain [Not Recovered/Not Resolved]
  - Vision blurred [Not Recovered/Not Resolved]
  - Visual acuity reduced [Not Recovered/Not Resolved]
  - Headache [Not Recovered/Not Resolved]
  - Vomiting [Not Recovered/Not Resolved]
